FAERS Safety Report 5178032-8 (Version None)
Quarter: 2006Q4

REPORT INFORMATION
  Report Type: 
  Country: None (occurrence: None)
  Receive Date: 20061218
  Receipt Date: 20060728
  Transmission Date: 20070319
  Serious: No
  Sender: FDA-Public Use
  Company Number: US-AMGEN-KDL188271

PATIENT
  Sex: Female

DRUGS (1)
  1. ENBREL [Suspect]
     Indication: RHEUMATOID ARTHRITIS
     Route: 058
     Dates: start: 20000201

REACTIONS (5)
  - CATARACT [None]
  - CORNEAL DISORDER [None]
  - INJECTION SITE IRRITATION [None]
  - STAPHYLOCOCCAL INFECTION [None]
  - SURGERY [None]
